FAERS Safety Report 23673993 (Version 1)
Quarter: 2024Q1

REPORT INFORMATION
  Report Type: Spontaneous
  Country: CN (occurrence: CN)
  Receive Date: 20240326
  Receipt Date: 20240326
  Transmission Date: 20240410
  Serious: Yes (Hospitalization)
  Sender: FDA-Public Use
  Company Number: CN-002147023-NVSC2024CN062834

PATIENT
  Age: 70 Year
  Sex: Male
  Weight: 76 kg

DRUGS (1)
  1. SACUBITRIL\VALSARTAN [Suspect]
     Active Substance: SACUBITRIL\VALSARTAN
     Indication: Hypertension
     Dosage: 100 MG, QD
     Route: 048
     Dates: start: 20240304, end: 20240305

REACTIONS (4)
  - Tongue oedema [Recovered/Resolved]
  - Dysarthria [Unknown]
  - Drooling [Unknown]
  - Circumoral oedema [Unknown]

NARRATIVE: CASE EVENT DATE: 20240305
